FAERS Safety Report 5237886-7 (Version None)
Quarter: 2007Q1

REPORT INFORMATION
  Report Type: 
  Country: None (occurrence: None)
  Receive Date: 20070214
  Receipt Date: 20070209
  Transmission Date: 20070707
  Serious: Yes (Hospitalization)
  Sender: FDA-Public Use
  Company Number: IT-ROXANE LABORATORIES, INC-2007-BP-01999RO

PATIENT
  Age: 81 Year
  Sex: Female
  Weight: 65 kg

DRUGS (4)
  1. MORPHINE [Suspect]
     Indication: SPINAL ANAESTHESIA
     Dosage: 60 MICROGRAMS X 1 DOSE
     Route: 037
  2. DIAZEPAM [Suspect]
     Indication: PREMEDICATION
     Dosage: 4 MG X 1 DOSE
     Route: 048
  3. BUPIVACAINE [Suspect]
     Indication: SPINAL ANAESTHESIA
     Dosage: 9 MG X 1 DOSE
     Route: 037
  4. SUFENTANIL CITRATE [Suspect]
     Indication: SPINAL ANAESTHESIA
     Dosage: 2.5 MICROGRAMS X 1 DOSE
     Route: 037

REACTIONS (8)
  - DYSPNOEA [None]
  - LETHARGY [None]
  - LOSS OF CONSCIOUSNESS [None]
  - MIOSIS [None]
  - NAUSEA [None]
  - OVERDOSE [None]
  - UNRESPONSIVE TO STIMULI [None]
  - VOMITING [None]
